FAERS Safety Report 18831981 (Version 1)
Quarter: 2021Q1

REPORT INFORMATION
  Report Type: Spontaneous
  Country: US (occurrence: US)
  Receive Date: 20210201
  Receipt Date: 20210201
  Transmission Date: 20210419
  Serious: No
  Sender: FDA-Public Use
  Company Number: US-ABBVIE-20K-163-3701175-00

PATIENT
  Age: 30 Year
  Sex: Female
  Weight: 112.14 kg

DRUGS (8)
  1. LEXAPRO [Concomitant]
     Active Substance: ESCITALOPRAM OXALATE
     Indication: ANXIETY
  2. ZYRTEC DAIICHI [Concomitant]
     Indication: SEASONAL ALLERGY
  3. HUMIRA [Suspect]
     Active Substance: ADALIMUMAB
     Route: 058
     Dates: start: 20201211
  4. WELLBUTRIN [Concomitant]
     Active Substance: BUPROPION HYDROCHLORIDE
     Indication: DEPRESSION
  5. PRILOSEC [Concomitant]
     Active Substance: OMEPRAZOLE MAGNESIUM
     Indication: GASTROOESOPHAGEAL REFLUX DISEASE
  6. HUMIRA [Suspect]
     Active Substance: ADALIMUMAB
     Indication: PSORIATIC ARTHROPATHY
     Route: 058
     Dates: start: 202009, end: 20201211
  7. AZELASTINE. [Concomitant]
     Active Substance: AZELASTINE HYDROCHLORIDE
     Indication: SEASONAL ALLERGY
  8. KLONOPIN [Concomitant]
     Active Substance: CLONAZEPAM
     Indication: ANXIETY

REACTIONS (8)
  - Endometriosis [Not Recovered/Not Resolved]
  - Incorrect dose administered [Recovered/Resolved]
  - Therapeutic response shortened [Recovered/Resolved]
  - Injection site pain [Recovered/Resolved]
  - Wrong technique in product usage process [Recovered/Resolved]
  - Arthralgia [Recovered/Resolved]
  - Intestinal ulcer [Not Recovered/Not Resolved]
  - Fatigue [Recovered/Resolved]

NARRATIVE: CASE EVENT DATE: 202009
